FAERS Safety Report 10250705 (Version 1)
Quarter: 2014Q2

REPORT INFORMATION
  Report Type: Report from Study
  Country: GB (occurrence: GB)
  Receive Date: 20140620
  Receipt Date: 20140620
  Transmission Date: 20141212
  Serious: Yes (Death)
  Sender: FDA-Public Use
  Company Number: GB-BAXTER-2014BAX033827

PATIENT
  Sex: 0

DRUGS (5)
  1. IFOSFAMIDE INJECTION 2G [Suspect]
     Indication: HODGKIN^S DISEASE
     Dosage: 1 G/M2; DAYS 1-5; 4-6 CYCLES
     Route: 042
  2. ETOPOSIDE [Suspect]
     Indication: HODGKIN^S DISEASE
     Dosage: DAYS 1-4; 4-6 CYCLES
     Route: 042
  3. PREDNISOLONE [Suspect]
     Indication: HODGKIN^S DISEASE
     Dosage: DAYS 1-5; 4-6 CYCLES
     Route: 048
  4. CISPLATIN [Suspect]
     Indication: HODGKIN^S DISEASE
     Dosage: ON DAY 10; 4-6 CYCLES
     Route: 042
  5. MESNA [Suspect]
     Indication: PROPHYLAXIS
     Route: 065

REACTIONS (1)
  - Disease progression [Fatal]
